FAERS Safety Report 25145601 (Version 1)
Quarter: 2025Q2

REPORT INFORMATION
  Report Type: Spontaneous
  Country: US (occurrence: US)
  Receive Date: 20250401
  Receipt Date: 20250401
  Transmission Date: 20250716
  Serious: Yes (Other)
  Sender: GE HEALTHCARE
  Company Number: US-GE HEALTHCARE-2025CSU003927

PATIENT
  Age: 81 Year
  Sex: Female
  Weight: 60.3 kg

DRUGS (6)
  1. VIZAMYL [Suspect]
     Active Substance: FLUTEMETAMOL F-18
     Indication: Diagnostic procedure
     Route: 042
     Dates: start: 20250327
  2. ALENDRONATE [Concomitant]
     Active Substance: ALENDRONATE SODIUM
  3. LUMIGAN [Concomitant]
     Active Substance: BIMATOPROST
  4. RIVASTIGMINE [Concomitant]
     Active Substance: RIVASTIGMINE
  5. NAMENDA [Concomitant]
     Active Substance: MEMANTINE HYDROCHLORIDE
  6. LEQEMBI [Concomitant]
     Active Substance: LECANEMAB-IRMB

REACTIONS (1)
  - Hot flush [Recovered/Resolved]

NARRATIVE: CASE EVENT DATE: 20250327
